FAERS Safety Report 11455765 (Version 1)
Quarter: 2015Q3

REPORT INFORMATION
  Report Type: Report from Study
  Country: US (occurrence: US)
  Receive Date: 20150903
  Receipt Date: 20150903
  Transmission Date: 20151125
  Serious: Yes (Hospitalization)
  Sender: FDA-Public Use
  Company Number: US-REGENERON PHARMACEUTICALS, INC.-2015-12082

PATIENT

DRUGS (11)
  1. OXYBUTYNIN [Concomitant]
     Active Substance: OXYBUTYNIN
     Indication: HYPERTONIC BLADDER
  2. I CAPS VITAMINS [Concomitant]
     Indication: DRY AGE-RELATED MACULAR DEGENERATION
  3. TORSEMIDE. [Concomitant]
     Active Substance: TORSEMIDE
     Indication: HYPERTENSION
  4. SYMBICORT [Concomitant]
     Active Substance: BUDESONIDE\FORMOTEROL FUMARATE DIHYDRATE
     Indication: DYSPNOEA
  5. EYLEA [Suspect]
     Active Substance: AFLIBERCEPT
     Indication: AGE-RELATED MACULAR DEGENERATION
     Dosage: 0.5 MG MILLIGRAM(S), TREAT + EXTEND @ 16 WK INTERVAL
     Route: 031
     Dates: start: 20140107
  6. EYLEA [Suspect]
     Active Substance: AFLIBERCEPT
     Dosage: 0.5 MG MILLIGRAM(S), TREAT + EXTEND @ 16 WK INTERVAL
     Route: 031
     Dates: start: 20150504, end: 20150504
  7. METOPROLOL [Concomitant]
     Active Substance: METOPROLOL
     Indication: HYPERTENSION
  8. RANEXA [Concomitant]
     Active Substance: RANOLAZINE
     Indication: ARRHYTHMIA
  9. ISOSORB MONO [Concomitant]
     Active Substance: ISOSORBIDE MONONITRATE
     Indication: ANGINA PECTORIS
  10. SIMVASTATIN. [Concomitant]
     Active Substance: SIMVASTATIN
     Indication: HYPERCHOLESTEROLAEMIA
  11. WARFARIN [Concomitant]
     Active Substance: WARFARIN
     Indication: ARRHYTHMIA

REACTIONS (1)
  - Cardiac disorder [Unknown]

NARRATIVE: CASE EVENT DATE: 20150601
